FAERS Safety Report 9086767 (Version 1)
Quarter: 2013Q1

REPORT INFORMATION
  Report Type: Report from Study
  Country: US (occurrence: US)
  Receive Date: 20130131
  Receipt Date: 20130131
  Transmission Date: 20140127
  Serious: No
  Sender: FDA-Public Use
  Company Number: US-ABBOTT-12P-163-0947336-00

PATIENT
  Age: 60 Year
  Sex: Female

DRUGS (12)
  1. HUMIRA 40 MG/0.8 ML PEN [Suspect]
     Indication: CROHN^S DISEASE
     Dosage: DAY 1
     Dates: start: 20120530, end: 20120530
  2. HUMIRA 40 MG/0.8 ML PEN [Suspect]
     Dosage: 40 MG EVERY OTHER WEEK
     Dates: end: 20120928
  3. HYDROCODONE [Concomitant]
     Indication: PAIN
     Dosage: 10-325 MG 6 TABLETS A DAY
  4. OXYCODONE [Concomitant]
     Indication: PAIN
     Dosage: 5 MG, 1-2 TABLETS TID PRN
  5. METHOTREXATE [Concomitant]
     Indication: PRODUCT USED FOR UNKNOWN INDICATION
     Dosage: 2.5 MG, 5 TABLETS WEEKLY
  6. TRAZODONE [Concomitant]
     Indication: SLEEP DISORDER
     Dosage: 200 MG DAILY
  7. DEXILANT [Concomitant]
     Indication: ABDOMINAL PAIN UPPER
     Dosage: 30 MG DAILY
  8. NAPROXEN [Concomitant]
     Indication: LIGAMENT RUPTURE
     Dosage: 500 MG BID
  9. ESTRADIOL [Concomitant]
     Indication: PRODUCT USED FOR UNKNOWN INDICATION
     Dosage: 1 MG DAILY
  10. OMPRAZOLE [Concomitant]
     Indication: GASTROOESOPHAGEAL REFLUX DISEASE
     Dosage: 40 MG DAILY
  11. CITALOPRAM [Concomitant]
     Indication: DEPRESSION
     Dosage: 40 MG DAILY
  12. FOLIC ACID [Concomitant]
     Indication: PRODUCT USED FOR UNKNOWN INDICATION
     Dosage: 1 MG DAILY

REACTIONS (5)
  - Activities of daily living impaired [Not Recovered/Not Resolved]
  - Impaired work ability [Not Recovered/Not Resolved]
  - Feeling abnormal [Not Recovered/Not Resolved]
  - Inappropriate schedule of drug administration [Recovering/Resolving]
  - Pain [Recovering/Resolving]
